FAERS Safety Report 7378479-5 (Version None)
Quarter: 2011Q1

REPORT INFORMATION
  Report Type: 
  Country: None (occurrence: None)
  Receive Date: 20110328
  Receipt Date: 20110317
  Transmission Date: 20110831
  Serious: Yes (Hospitalization, Other)
  Sender: FDA-Public Use
  Company Number: US-ELI_LILLY_AND_COMPANY-US201103005815

PATIENT
  Sex: Female
  Weight: 85.714 kg

DRUGS (15)
  1. OXYCODONE [Concomitant]
     Indication: PAIN
     Dosage: 10 MG, AS NEEDED
     Route: 048
  2. NEPHRO-VITE [Concomitant]
     Indication: VITAMIN SUPPLEMENTATION
     Dosage: UNK, DAILY (1/D)
     Route: 048
  3. BYETTA [Suspect]
     Indication: TYPE 2 DIABETES MELLITUS
     Dosage: 5 UG, 2/D
     Route: 058
     Dates: start: 20050601, end: 20050701
  4. EFFEXOR [Concomitant]
     Indication: ANXIETY DISORDER DUE TO A GENERAL MEDICAL CONDITION
     Dosage: 150 MG, DAILY (1/D)
     Route: 048
  5. PRILOSEC [Concomitant]
     Indication: GASTROOESOPHAGEAL REFLUX DISEASE
  6. REQUIP [Concomitant]
     Indication: MUSCLE SPASMS
     Dosage: 2 MG, EACH EVENING
     Route: 048
  7. BYETTA [Suspect]
     Dosage: 5 UG, 2/D
     Route: 058
  8. COREG [Concomitant]
     Indication: HYPERTENSION
     Dosage: 6.25 MG, 2/D
     Route: 048
  9. LEVOXYL [Concomitant]
     Indication: THYROID DISORDER
     Dosage: 375 MG, DAILY (1/D)
     Route: 048
  10. SINGULAIR [Concomitant]
     Indication: MULTIPLE ALLERGIES
     Dosage: 10 MG, EACH EVENING
     Route: 048
  11. BYETTA [Suspect]
     Dosage: 10 UG, 2/D
     Route: 058
     Dates: start: 20100101
  12. NEURONTIN [Concomitant]
     Indication: PAIN
     Dosage: 200 MG, EACH EVENING
     Route: 048
  13. PRIMIDONE [Concomitant]
     Indication: TREMOR
     Dosage: 200 MG, EACH EVENING
     Route: 048
  14. LASIX [Concomitant]
     Indication: POLYURIA
     Dosage: 200 MG, DAILY (1/D)
     Route: 048
  15. ZOCOR [Concomitant]
     Indication: BLOOD CHOLESTEROL INCREASED
     Dosage: 20 MG, QD
     Route: 048

REACTIONS (8)
  - UPPER LIMB FRACTURE [None]
  - ANAEMIA [None]
  - RENAL FAILURE ACUTE [None]
  - ASTHENIA [None]
  - FALL [None]
  - BLOOD GLUCOSE INCREASED [None]
  - BLOOD GLUCOSE ABNORMAL [None]
  - PYREXIA [None]
